FAERS Safety Report 13568713 (Version 1)
Quarter: 2017Q2

REPORT INFORMATION
  Report Type: Spontaneous
  Country: DE (occurrence: DE)
  Receive Date: 20170522
  Receipt Date: 20170522
  Transmission Date: 20170830
  Serious: Yes (Hospitalization, Other)
  Sender: FDA-Public Use
  Company Number: DE-TEVA-767798GER

PATIENT
  Age: 84 Year
  Sex: Male
  Weight: 68 kg

DRUGS (1)
  1. TAMSULOSIN-RATIOPHARM 0.4 MG HARTKPS. MIT VERAEND. WIRKSTOFFFREISETZUN [Suspect]
     Active Substance: TAMSULOSIN
     Indication: PROSTATIC DISORDER
     Dosage: .4 MILLIGRAM DAILY;
     Route: 048
     Dates: start: 201602

REACTIONS (4)
  - Respiratory distress [Unknown]
  - Palpitations [Unknown]
  - Arrhythmia [Unknown]
  - Peripheral swelling [Unknown]

NARRATIVE: CASE EVENT DATE: 20170207
